FAERS Safety Report 8213442-3 (Version None)
Quarter: 2012Q1

REPORT INFORMATION
  Report Type: 
  Country: None (occurrence: None)
  Receive Date: 20120315
  Receipt Date: 20120314
  Transmission Date: 20120608
  Serious: Yes (Disabling)
  Sender: FDA-Public Use
  Company Number: KR-ROCHE-1049137

PATIENT
  Age: 47 Year
  Sex: Male

DRUGS (1)
  1. AVASTIN [Suspect]
     Indication: GLAUCOMA
     Route: 050
     Dates: start: 20101215, end: 20101215

REACTIONS (1)
  - BLINDNESS UNILATERAL [None]
